FAERS Safety Report 8029039-4 (Version None)
Quarter: 2012Q1

REPORT INFORMATION
  Report Type: 
  Country: None (occurrence: None)
  Receive Date: 20120106
  Receipt Date: 20120103
  Transmission Date: 20120608
  Serious: Yes (Death, Life-Threatening, Hospitalization, Other)
  Sender: FDA-Public Use
  Company Number: FR-ELI_LILLY_AND_COMPANY-FR201112002524

PATIENT
  Sex: Female
  Weight: 65 kg

DRUGS (8)
  1. EFFIENT [Suspect]
     Indication: ISCHAEMIC HEART DISEASE PROPHYLAXIS
     Dosage: 10 MG, QD
     Route: 048
     Dates: start: 20110518, end: 20110718
  2. BISOPROLOL [Concomitant]
     Indication: CORONARY ARTERY DISEASE
     Dosage: 2.5 MG, QD
     Route: 048
  3. HEPARIN [Concomitant]
     Indication: ACUTE CORONARY SYNDROME
     Dosage: 5000 IU, UNK
     Dates: start: 20110717, end: 20110718
  4. RAMIPRIL [Concomitant]
     Indication: CORONARY ARTERY DISEASE
     Dosage: 2.5 MG, QD
     Route: 048
  5. ASPIRIN [Concomitant]
     Indication: ISCHAEMIC HEART DISEASE PROPHYLAXIS
     Dosage: 75 MG, QD
     Route: 048
     Dates: start: 20110518, end: 20110718
  6. HEPARIN [Concomitant]
     Dosage: UNK, CONTINUOUS
     Route: 042
  7. NITROGLYCERIN [Concomitant]
     Dosage: 0.15 MG, PRN
  8. ATORVASTATIN CALCIUM [Concomitant]
     Indication: CORONARY ARTERY DISEASE
     Dosage: 80 MG, QD
     Route: 048

REACTIONS (2)
  - HAEMORRHAGIC STROKE [None]
  - CORONARY ARTERY RESTENOSIS [None]
